FAERS Safety Report 21364892 (Version 3)
Quarter: 2022Q3

REPORT INFORMATION
  Report Type: Spontaneous
  Country: CN (occurrence: CN)
  Receive Date: 20220922
  Receipt Date: 20220928
  Transmission Date: 20221027
  Serious: Yes (Life-Threatening, Other)
  Sender: FDA-Public Use
  Company Number: CN-BAYER-2022A130801

PATIENT
  Age: 42 Year
  Sex: Female
  Weight: 55 kg

DRUGS (14)
  1. MOMETASONE FUROATE [Suspect]
     Active Substance: MOMETASONE FUROATE
     Indication: Dermatitis allergic
     Dosage: 1 G, QD
     Route: 061
     Dates: start: 20220818, end: 20220819
  2. MOMETASONE FUROATE [Suspect]
     Active Substance: MOMETASONE FUROATE
     Indication: Dermatitis atopic
  3. AZELASTINE HYDROCHLORIDE\BUDESONIDE [Suspect]
     Active Substance: AZELASTINE HYDROCHLORIDE\BUDESONIDE
     Dosage: UNK, ONCE IN THE MORNING AND ONCE IN THE AFTERNOON
     Dates: start: 20220820
  4. CLINDAMYCIN PHOSPHATE [Suspect]
     Active Substance: CLINDAMYCIN PHOSPHATE
     Indication: Dermatitis atopic
     Dosage: 1.2 G, QD
     Route: 041
     Dates: start: 20220818, end: 20220819
  5. MIZOLASTINE [Suspect]
     Active Substance: MIZOLASTINE
     Indication: Dermatitis allergic
     Dosage: 10 MG, QD
     Route: 048
     Dates: start: 20220719, end: 20220725
  6. MIZOLASTINE [Suspect]
     Active Substance: MIZOLASTINE
     Dosage: 10 MG, QD
     Route: 048
     Dates: start: 20220818, end: 20220819
  7. METHYLPREDNISOLONE SODIUM SUCCINATE [Suspect]
     Active Substance: METHYLPREDNISOLONE SODIUM SUCCINATE
     Indication: Dermatitis allergic
     Dosage: 40 MG, QD
     Route: 041
     Dates: start: 20220818, end: 20220819
  8. SODIUM THIOSULFATE [Suspect]
     Active Substance: SODIUM THIOSULFATE
     Indication: Dermatitis allergic
     Dosage: 0.64 G, QD
     Route: 042
     Dates: start: 20220818, end: 20220819
  9. ABROCITINIB [Suspect]
     Active Substance: ABROCITINIB
     Indication: Dermatitis atopic
     Dosage: 100 MG, QD
     Route: 048
     Dates: start: 20220818, end: 20220819
  10. SODIUM CHLORIDE [Concomitant]
     Active Substance: SODIUM CHLORIDE
     Indication: Vehicle solution use
     Dosage: 100 ML, QD
     Route: 041
     Dates: start: 20220818, end: 20220819
  11. STERILE WATER [Concomitant]
     Active Substance: WATER
     Indication: Vehicle solution use
     Dosage: 20 ML, QD
     Route: 042
     Dates: start: 20220818, end: 20220819
  12. HYDROXYCHLOROQUINE SULFATE [Concomitant]
     Active Substance: HYDROXYCHLOROQUINE SULFATE
     Indication: Dermatitis allergic
     Dosage: 100 MG, BID
     Route: 048
     Dates: start: 20220719, end: 20220725
  13. ESTAZOLAM [Concomitant]
     Active Substance: ESTAZOLAM
     Indication: Sleep disorder
     Dosage: 1 MG, QD
     Route: 048
     Dates: start: 20220816, end: 20220818
  14. CHLORPHENIRAMINE MALEATE [Concomitant]
     Active Substance: CHLORPHENIRAMINE MALEATE
     Indication: Urticaria
     Dosage: 10 MG, QD
     Route: 042
     Dates: start: 20220816, end: 20220816

REACTIONS (17)
  - Ventricular arrhythmia [Not Recovered/Not Resolved]
  - Anaphylactic shock [Not Recovered/Not Resolved]
  - Metabolic acidosis [Not Recovered/Not Resolved]
  - Hyperlactacidaemia [Not Recovered/Not Resolved]
  - Capillary leak syndrome [Not Recovered/Not Resolved]
  - Fibrin D dimer increased [Not Recovered/Not Resolved]
  - Blood fibrinogen decreased [Not Recovered/Not Resolved]
  - Prothrombin time prolonged [Not Recovered/Not Resolved]
  - Sudden cardiac death [Recovering/Resolving]
  - Coma [Not Recovered/Not Resolved]
  - Cardiac arrest [Not Recovered/Not Resolved]
  - Respiratory arrest [Not Recovered/Not Resolved]
  - Anal incontinence [Not Recovered/Not Resolved]
  - Depressed level of consciousness [Not Recovered/Not Resolved]
  - Loss of consciousness [Not Recovered/Not Resolved]
  - Mydriasis [Not Recovered/Not Resolved]
  - Rash erythematous [Not Recovered/Not Resolved]

NARRATIVE: CASE EVENT DATE: 20220820
